FAERS Safety Report 5932708-0 (Version None)
Quarter: 2008Q4

REPORT INFORMATION
  Report Type: 
  Country: None (occurrence: None)
  Receive Date: 20081027
  Receipt Date: 20081027
  Transmission Date: 20090506
  Serious: Yes (Other)
  Sender: FDA-Public Use
  Company Number: None

PATIENT
  Age: 37 Year
  Sex: Female
  Weight: 49.8957 kg

DRUGS (1)
  1. MIRENA [Suspect]
     Indication: CONTRACEPTION
     Dosage: INTRA-UTERINE
     Route: 015
     Dates: start: 20070401, end: 20070815

REACTIONS (6)
  - COLITIS ULCERATIVE [None]
  - CONDITION AGGRAVATED [None]
  - DIARRHOEA [None]
  - RECTAL HAEMORRHAGE [None]
  - VOMITING [None]
  - WEIGHT DECREASED [None]
